FAERS Safety Report 5639132-9 (Version None)
Quarter: 2008Q1

REPORT INFORMATION
  Report Type: 
  Country: None (occurrence: None)
  Receive Date: 20080226
  Receipt Date: 20080213
  Transmission Date: 20080703
  Serious: Yes (Other)
  Sender: FDA-Public Use
  Company Number: US-ELI_LILLY_AND_COMPANY-US200802003244

PATIENT
  Age: 44 Year
  Sex: Female
  Weight: 72.562 kg

DRUGS (5)
  1. CYMBALTA [Suspect]
     Indication: NEURALGIA
     Dosage: 30 MG, UNK
     Dates: start: 20070901, end: 20070101
  2. CYMBALTA [Suspect]
     Dosage: 30 MG, 2/D
     Dates: start: 20070101, end: 20071205
  3. CYMBALTA [Suspect]
     Dosage: 30 MG, UNK
  4. ZANAFLEX [Concomitant]
  5. NEURONTIN [Concomitant]

REACTIONS (6)
  - FACE INJURY [None]
  - INJURY [None]
  - INSOMNIA [None]
  - MANIA [None]
  - SYNCOPE [None]
  - THERMAL BURN [None]
